FAERS Safety Report 25987149 (Version 1)
Quarter: 2025Q4

REPORT INFORMATION
  Report Type: Spontaneous
  Country: CN (occurrence: CN)
  Receive Date: 20251103
  Receipt Date: 20251103
  Transmission Date: 20260117
  Serious: Yes (Hospitalization, Other)
  Sender: STRIDES
  Company Number: CN-STRIDES ARCOLAB LIMITED-2025SP013544

PATIENT
  Age: 27 Year
  Sex: Female

DRUGS (20)
  1. SUCRALFATE [Suspect]
     Active Substance: SUCRALFATE
     Indication: Vomiting
     Dosage: UNK SUSPENSION
     Dates: start: 202410
  2. CETIRIZINE [Suspect]
     Active Substance: CETIRIZINE HYDROCHLORIDE
     Indication: Dermatitis allergic
     Dosage: UNK
     Route: 065
     Dates: start: 202412
  3. PHENOBARBITAL [Suspect]
     Active Substance: PHENOBARBITAL
     Indication: Seizure
     Dosage: UNK
     Route: 065
     Dates: start: 202411
  4. MEROPENEM [Suspect]
     Active Substance: MEROPENEM
     Indication: Pneumonia
     Dosage: 1000 MILLIGRAM, EVERY 8 HRS
     Route: 042
     Dates: start: 202411
  5. LACOSAMIDE [Suspect]
     Active Substance: LACOSAMIDE
     Indication: Seizure
     Dosage: UNK
     Route: 065
     Dates: start: 202411
  6. CEFTRIAXONE [Suspect]
     Active Substance: CEFTRIAXONE
     Indication: Antibiotic therapy
     Dosage: 2 GRAM, QD
     Route: 042
     Dates: start: 202410
  7. ACYCLOVIR [Suspect]
     Active Substance: ACYCLOVIR
     Indication: Evidence based treatment
     Dosage: 500 MILLIGRAM, EVERY 8 HOURS
     Route: 042
     Dates: start: 202410
  8. MANNITOL [Suspect]
     Active Substance: MANNITOL
     Indication: Intracranial pressure increased
     Dosage: 125 MILLILITER, EVERY 8 HRS
     Route: 042
     Dates: start: 202410
  9. MANNITOL [Suspect]
     Active Substance: MANNITOL
     Dosage: 125 MILLILITER, EVERY 6 HRS
     Route: 042
     Dates: start: 2024
  10. PIPERACILLIN AND TAZOBACTAM [Suspect]
     Active Substance: PIPERACILLIN SODIUM\TAZOBACTAM SODIUM
     Indication: Antibiotic therapy
     Dosage: 4.5 GRAM, EVERY 8 HOURS
     Route: 042
     Dates: start: 202410
  11. ILAPRAZOLE [Suspect]
     Active Substance: ILAPRAZOLE
     Indication: Vomiting
     Dosage: ENTERIC-COATED TABLETS
     Dates: start: 202410
  12. DEXMEDETOMIDINE [Suspect]
     Active Substance: DEXMEDETOMIDINE
     Indication: Seizure
     Dosage: UNK
     Route: 065
     Dates: start: 202411
  13. OXYTOCIN [Suspect]
     Active Substance: OXYTOCIN
     Indication: Uterine contractions during pregnancy
     Dosage: UNK
     Route: 065
     Dates: start: 202411
  14. OXYTOCIN [Suspect]
     Active Substance: OXYTOCIN
     Indication: Labour augmentation
  15. CEFOPERAZONE SODIUM\SULBACTAM [Suspect]
     Active Substance: CEFOPERAZONE SODIUM\SULBACTAM
     Indication: Pneumonia
     Dosage: 4 GRAM, EVERY 12 HRS
     Route: 042
     Dates: start: 202411
  16. TIGECYCLINE [Suspect]
     Active Substance: TIGECYCLINE
     Indication: Pneumonia
     Dosage: 50 MILLIGRAM, BID
     Route: 042
     Dates: start: 202411
  17. TIGECYCLINE [Suspect]
     Active Substance: TIGECYCLINE
     Dosage: 100 MILLIGRAM, BID
     Route: 042
     Dates: start: 202411
  18. COLISTIN SULFATE [Suspect]
     Active Substance: COLISTIN SULFATE
     Indication: Pneumonia
     Dosage: 750000 INTERNATIONAL UNIT, EVERY 12 HRS
     Route: 042
     Dates: start: 202411
  19. EBASTINE [Suspect]
     Active Substance: EBASTINE
     Indication: Dermatitis allergic
     Dosage: UNK
     Route: 065
     Dates: start: 202412
  20. LACOSAMIDE [Suspect]
     Active Substance: LACOSAMIDE
     Indication: Seizure
     Dosage: 100 MILLIGRAM, BID
     Route: 042
     Dates: start: 202411

REACTIONS (7)
  - Malnutrition [Recovering/Resolving]
  - Hyponatraemia [Recovering/Resolving]
  - Acid base balance abnormal [Recovering/Resolving]
  - Thrombosis [Recovering/Resolving]
  - Hypertransaminasaemia [Recovering/Resolving]
  - Maternal exposure during pregnancy [Unknown]
  - Off label use [Unknown]

NARRATIVE: CASE EVENT DATE: 20240101
